FAERS Safety Report 24717282 (Version 1)
Quarter: 2024Q4

REPORT INFORMATION
  Report Type: Report from Study
  Country: US (occurrence: US)
  Receive Date: 20241210
  Receipt Date: 20241210
  Transmission Date: 20250114
  Serious: No
  Sender: STALLERGENES
  Company Number: US-AIMMUNE THERAPEUTICS, INC.-2024AIMT00999

PATIENT
  Sex: Female

DRUGS (3)
  1. PALFORZIA [Suspect]
     Active Substance: PEANUT
     Indication: Food allergy
     Dosage: IDE (0.5-6.0MG, ONCE)
  2. PALFORZIA [Suspect]
     Active Substance: PEANUT
     Dosage: UNK
  3. PALFORZIA [Suspect]
     Active Substance: PEANUT
     Dosage: UNK, LAST DOSE PRIOR TO EVENT

REACTIONS (1)
  - Asthma [Unknown]
